FAERS Safety Report 6291664-9 (Version None)
Quarter: 2009Q3

REPORT INFORMATION
  Report Type: 
  Country: None (occurrence: None)
  Receive Date: 20090730
  Receipt Date: 20090730
  Transmission Date: 20100115
  Serious: Yes (Hospitalization)
  Sender: FDA-Public Use
  Company Number: None

PATIENT
  Age: 8 Year
  Sex: Female
  Weight: 47.6277 kg

DRUGS (1)
  1. ZOFRAN [Suspect]
     Indication: PROCEDURAL VOMITING
     Dates: start: 20090727, end: 20090727

REACTIONS (4)
  - HYPOAESTHESIA [None]
  - MUSCLE SPASMS [None]
  - PARAESTHESIA [None]
  - RASH [None]
